FAERS Safety Report 13678839 (Version 1)
Quarter: 2017Q2

REPORT INFORMATION
  Report Type: Spontaneous
  Country: KZ (occurrence: KZ)
  Receive Date: 20170622
  Receipt Date: 20170622
  Transmission Date: 20170830
  Serious: Yes (Hospitalization)
  Sender: FDA-Public Use
  Company Number: KZ-JNJFOC-20170620327

PATIENT
  Age: 82 Year
  Sex: Female

DRUGS (1)
  1. XARELTO [Suspect]
     Active Substance: RIVAROXABAN
     Indication: ATRIAL FIBRILLATION
     Route: 048
     Dates: end: 20170606

REACTIONS (5)
  - Dyspnoea exertional [Unknown]
  - Pericardial effusion [Unknown]
  - Oedema peripheral [Unknown]
  - Atrial thrombosis [Unknown]
  - Off label use [Unknown]
